FAERS Safety Report 21917182 (Version 1)
Quarter: 2023Q1

REPORT INFORMATION
  Report Type: Spontaneous
  Country: US (occurrence: US)
  Receive Date: 20230126
  Receipt Date: 20230126
  Transmission Date: 20230417
  Serious: No
  Sender: FDA-Public Use
  Company Number: US-BAUSCH-BL-2023-001293

PATIENT
  Age: 75 Year
  Sex: Male

DRUGS (2)
  1. IMIQUIMOD [Suspect]
     Active Substance: IMIQUIMOD
     Indication: Malignant melanoma
     Dosage: EVERY OTHER DAY
     Route: 061
     Dates: start: 20230118
  2. IMIQUIMOD [Suspect]
     Active Substance: IMIQUIMOD
     Indication: Product use in unapproved indication

REACTIONS (2)
  - Pruritus [Unknown]
  - Product use in unapproved indication [Unknown]
